FAERS Safety Report 13152699 (Version 3)
Quarter: 2017Q2

REPORT INFORMATION
  Report Type: Spontaneous
  Country: RU (occurrence: RU)
  Receive Date: 20170125
  Receipt Date: 20170509
  Transmission Date: 20170830
  Serious: Yes (Other)
  Sender: FDA-Public Use
  Company Number: RU-ABBVIE-17P-251-1850584-00

PATIENT
  Age: 24 Month
  Sex: Female

DRUGS (2)
  1. DEPAKINE CHRONOSPHERE [Suspect]
     Active Substance: VALPROIC ACID
     Indication: EPILEPSY
     Route: 048
  2. DEPAKINE CHRONOSPHERE [Suspect]
     Active Substance: VALPROIC ACID
     Route: 048

REACTIONS (2)
  - Drug ineffective [Recovered/Resolved]
  - Seizure [Recovered/Resolved]
